FAERS Safety Report 8345484-1 (Version None)
Quarter: 2012Q2

REPORT INFORMATION
  Report Type: 
  Country: None (occurrence: None)
  Receive Date: 20120508
  Receipt Date: 20120501
  Transmission Date: 20120825
  Serious: Yes (Hospitalization)
  Sender: FDA-Public Use
  Company Number: NL-MEDIMMUNE-MEDI-0013919

PATIENT
  Sex: Female
  Weight: 7.1 kg

DRUGS (2)
  1. SYNAGIS [Suspect]
     Route: 030
     Dates: start: 20110915, end: 20111013
  2. SYNAGIS [Suspect]
     Route: 030
     Dates: start: 20111111

REACTIONS (1)
  - FEBRILE CONVULSION [None]
